FAERS Safety Report 10594675 (Version 1)
Quarter: 2014Q4

REPORT INFORMATION
  Report Type: Spontaneous
  Country: US (occurrence: US)
  Receive Date: 20141120
  Receipt Date: 20141120
  Transmission Date: 20150529
  Serious: No
  Sender: FDA-Public Use
  Company Number: US-TEVA-475670USA

PATIENT
  Sex: Male

DRUGS (2)
  1. AMIODARONE [Suspect]
     Active Substance: AMIODARONE
  2. BUMETANIDE. [Suspect]
     Active Substance: BUMETANIDE

REACTIONS (2)
  - Product colour issue [Unknown]
  - Product dosage form confusion [Unknown]
